FAERS Safety Report 4362980-2 (Version None)
Quarter: 2004Q2

REPORT INFORMATION
  Report Type: 
  Country: None (occurrence: None)
  Receive Date: 20040517
  Receipt Date: 20040406
  Transmission Date: 20050107
  Serious: No
  Sender: FDA-Public Use
  Company Number: S04-USA-01924-01

PATIENT
  Age: 76 Year
  Sex: Female

DRUGS (4)
  1. NAMENDA [Suspect]
     Indication: DEMENTIA ALZHEIMER'S TYPE
     Dates: start: 20040101
  2. PAXIL [Concomitant]
  3. BLOOD PRESSURE PILL (NOS) [Concomitant]
  4. EXELON [Concomitant]

REACTIONS (1)
  - HALLUCINATION, AUDITORY [None]
